FAERS Safety Report 15404996 (Version 1)
Quarter: 2018Q3

REPORT INFORMATION
  Report Type: Spontaneous
  Country: IN (occurrence: IN)
  Receive Date: 20180920
  Receipt Date: 20180920
  Transmission Date: 20181010
  Serious: Yes (Life-Threatening, Other)
  Sender: FDA-Public Use
  Company Number: IN-PRINSTON PHARMACEUTICAL INC.-2018PRN01356

PATIENT
  Age: 23 Year
  Sex: Female

DRUGS (2)
  1. SODA?BICARBONATE [Concomitant]
     Indication: SUPPLEMENTATION THERAPY
     Route: 065
  2. FUROSEMIDE. [Suspect]
     Active Substance: FUROSEMIDE
     Indication: PROPHYLAXIS
     Route: 042

REACTIONS (5)
  - Acute respiratory failure [Recovered/Resolved]
  - Acidosis [Unknown]
  - Hypernatraemia [Unknown]
  - Hypokalaemia [Recovered/Resolved]
  - Quadriplegia [Recovering/Resolving]
